FAERS Safety Report 11638575 (Version 1)
Quarter: 2015Q4

REPORT INFORMATION
  Report Type: Spontaneous
  Country: None (occurrence: FR)
  Receive Date: 20151016
  Receipt Date: 20151016
  Transmission Date: 20160304
  Serious: Yes (Hospitalization)
  Sender: FDA-Public Use
  Company Number: FR-MEDAC PHARMA, INC.-1043063

PATIENT
  Age: 43 Year
  Sex: Male

DRUGS (1)
  1. METOJECT [Suspect]
     Active Substance: METHOTREXATE SODIUM
     Route: 058
     Dates: start: 201403

REACTIONS (1)
  - Thrombophlebitis [Recovered/Resolved]

NARRATIVE: CASE EVENT DATE: 201505
